FAERS Safety Report 11922781 (Version 1)
Quarter: 2016Q1

REPORT INFORMATION
  Report Type: Spontaneous
  Country: US (occurrence: US)
  Receive Date: 20160115
  Receipt Date: 20160115
  Transmission Date: 20160526
  Serious: No
  Sender: FDA-Public Use
  Company Number: US-ELI_LILLY_AND_COMPANY-US201512005970

PATIENT
  Sex: Female

DRUGS (2)
  1. HUMULIN N [Suspect]
     Active Substance: INSULIN HUMAN
     Dosage: 18 U, QD
     Route: 065
     Dates: start: 20151210
  2. HUMULIN N [Suspect]
     Active Substance: INSULIN HUMAN
     Indication: DIABETES MELLITUS
     Dosage: 10 U, QD
     Route: 065
     Dates: start: 20151210

REACTIONS (14)
  - Dysphonia [Unknown]
  - Muscular weakness [Unknown]
  - Dizziness [Unknown]
  - Blood glucose decreased [Unknown]
  - Pain [Unknown]
  - Asthenia [Unknown]
  - Nasal discomfort [Unknown]
  - Headache [Unknown]
  - Rash [Unknown]
  - Swelling face [Unknown]
  - Drug hypersensitivity [Unknown]
  - Influenza like illness [Unknown]
  - Eye irritation [Unknown]
  - Rash pruritic [Unknown]

NARRATIVE: CASE EVENT DATE: 201512
